FAERS Safety Report 8832590 (Version 1)
Quarter: 2012Q4

REPORT INFORMATION
  Report Type: 
  Country: ES (occurrence: ES)
  Receive Date: 20121010
  Receipt Date: 20121010
  Transmission Date: 20130627
  Serious: Yes (Other)
  Sender: FDA-Public Use
  Company Number: ES-AMGEN-ESPSP2012062983

PATIENT
  Sex: Female

DRUGS (1)
  1. PROLIA [Suspect]
     Indication: PRODUCT USED FOR UNKNOWN INDICATION
     Dosage: UNK
     Dates: start: 20120917

REACTIONS (7)
  - Eye injury [Unknown]
  - Feeling hot [Unknown]
  - Pruritus [Unknown]
  - Tachycardia [Unknown]
  - Myalgia [Unknown]
  - Fatigue [Unknown]
  - Gastrointestinal disorder [Unknown]
